FAERS Safety Report 19312772 (Version 1)
Quarter: 2021Q2

REPORT INFORMATION
  Report Type: Report from Study
  Country: US (occurrence: US)
  Receive Date: 20210527
  Receipt Date: 20210527
  Transmission Date: 20210717
  Serious: Yes (Other)
  Sender: FDA-Public Use
  Company Number: US-AUROBINDO-AUR-APL-2021-021058

PATIENT
  Age: 3 Year
  Sex: Male
  Weight: 16 kg

DRUGS (7)
  1. CARBOPLATIN. [Suspect]
     Active Substance: CARBOPLATIN
     Indication: PROPHYLAXIS
     Dosage: 250 MILLIGRAM, ONCE A DAY, 250 MG (375 MG/M2), ONCE DAILY
     Route: 048
     Dates: start: 20171130, end: 20171203
  2. MORPHINE [Suspect]
     Active Substance: MORPHINE
     Indication: MUCOSAL INFLAMMATION
     Dosage: 0.03 MILLIGRAM/KILOGRAM
     Route: 065
     Dates: start: 20171210, end: 201712
  3. MELPHALAN. [Suspect]
     Active Substance: MELPHALAN
     Indication: PROPHYLAXIS
     Dosage: 40 MG (60 MG/M2), ONCE DAILY
     Route: 042
     Dates: start: 20171130, end: 20171202
  4. ISAVUCONAZONIUM [Suspect]
     Active Substance: ISAVUCONAZONIUM
     Dosage: 10 MG/KG, EVERY 8 HOURS
     Route: 042
     Dates: start: 20171208, end: 20171210
  5. ETOPOSIDE. [Suspect]
     Active Substance: ETOPOSIDE
     Indication: PROPHYLAXIS
     Dosage: 200 MG (300 MG/M2), ONCE DAILY
     Route: 042
     Dates: start: 20171130, end: 20171203
  6. DILAUDID [Suspect]
     Active Substance: HYDROMORPHONE HYDROCHLORIDE
     Indication: MUCOSAL INFLAMMATION
     Dosage: 0.2 MICROLITER, 0.2 ML/ML, AS NEEDED
     Route: 042
     Dates: start: 20171211
  7. ISAVUCONAZONIUM [Suspect]
     Active Substance: ISAVUCONAZONIUM
     Indication: ANTIFUNGAL PROPHYLAXIS
     Dosage: 10 MILLIGRAM/KILOGRAM, ONCE A DAY
     Route: 042
     Dates: start: 20171211

REACTIONS (6)
  - Epistaxis [Recovered/Resolved]
  - Pyrexia [Recovered/Resolved]
  - Pruritus [Recovered/Resolved]
  - Platelet count decreased [Recovered/Resolved]
  - Mucosal inflammation [Recovered/Resolved]
  - Febrile neutropenia [Recovered/Resolved]

NARRATIVE: CASE EVENT DATE: 20171210
